FAERS Safety Report 7184968-9 (Version None)
Quarter: 2010Q4

REPORT INFORMATION
  Report Type: 
  Country: None (occurrence: None)
  Receive Date: 20101222
  Receipt Date: 20101216
  Transmission Date: 20110411
  Serious: Yes (Other)
  Sender: FDA-Public Use
  Company Number: US-MERCK-1011USA02749

PATIENT
  Age: 68 Year
  Sex: Female

DRUGS (15)
  1. FOSAMAX [Suspect]
     Route: 048
  2. BONIVA [Suspect]
     Route: 065
  3. ACTONEL [Suspect]
     Route: 065
     Dates: start: 20090101, end: 20100601
  4. EVISTA [Suspect]
     Route: 065
  5. CALCIUM (UNSPECIFIED) [Suspect]
     Route: 065
  6. PLAVIX [Suspect]
     Route: 065
  7. ANTIMICROBIAL (UNSPECIFIED) [Suspect]
     Route: 065
  8. COREG [Concomitant]
     Route: 065
  9. ATACAND HCT [Concomitant]
     Route: 048
  10. CRESTOR [Concomitant]
     Route: 065
  11. OMEPRAZOLE [Concomitant]
     Route: 065
  12. VITAMIN D (UNSPECIFIED) [Concomitant]
     Route: 048
  13. VANTIN [Concomitant]
     Route: 065
  14. ACETAMINOPHEN [Concomitant]
     Route: 065
  15. CYANOCOBALAMIN [Concomitant]
     Route: 065

REACTIONS (14)
  - ABASIA [None]
  - CARDIAC DISORDER [None]
  - CONSTIPATION [None]
  - DEPRESSION [None]
  - EPISTAXIS [None]
  - FUNGAL INFECTION [None]
  - HYPOAESTHESIA [None]
  - INFLUENZA LIKE ILLNESS [None]
  - MUSCLE SPASMS [None]
  - NAUSEA [None]
  - RHINORRHOEA [None]
  - SINUS DISORDER [None]
  - UTERINE DISORDER [None]
  - WRIST FRACTURE [None]
